FAERS Safety Report 5352423-4 (Version None)
Quarter: 2007Q2

REPORT INFORMATION
  Report Type: 
  Country: None (occurrence: None)
  Receive Date: 20070607
  Receipt Date: 20070607
  Transmission Date: 20071010
  Serious: Yes (Hospitalization)
  Sender: FDA-Public Use
  Company Number: None

PATIENT
  Age: 26 Year
  Sex: Male
  Weight: 95 kg

DRUGS (2)
  1. FENOFIBRATE [Suspect]
     Indication: HEPATIC STEATOSIS
     Dosage: 1X / DAY - ORAL (047)
     Route: 048
     Dates: start: 20060622
  2. FENOFIBRATE [Suspect]
     Indication: HYPERCHOLESTEROLAEMIA
     Dosage: 1X / DAY - ORAL (047)
     Route: 048
     Dates: start: 20060622

REACTIONS (3)
  - BRONCHITIS [None]
  - OTITIS MEDIA [None]
  - PHARYNGITIS [None]
